FAERS Safety Report 7921310-7 (Version None)
Quarter: 2011Q4

REPORT INFORMATION
  Report Type: 
  Country: None (occurrence: None)
  Receive Date: 20111117
  Receipt Date: 20111107
  Transmission Date: 20120403
  Serious: Yes (Hospitalization, Other)
  Sender: FDA-Public Use
  Company Number: US-BAYER-2011-042457

PATIENT
  Sex: Female
  Weight: 122.45 kg

DRUGS (1)
  1. YAZ [Suspect]
     Dosage: UNK
     Dates: start: 20070101, end: 20070101

REACTIONS (4)
  - INJURY [None]
  - PAIN [None]
  - THROMBOSIS [None]
  - THROMBOPHLEBITIS SUPERFICIAL [None]
